FAERS Safety Report 7650044-1 (Version None)
Quarter: 2011Q3

REPORT INFORMATION
  Report Type: 
  Country: None (occurrence: None)
  Receive Date: 20110802
  Receipt Date: 20110802
  Transmission Date: 20111222
  Serious: Yes (Life-Threatening, Other)
  Sender: FDA-Public Use
  Company Number: None

PATIENT
  Age: 54 Year
  Sex: Female
  Weight: 56.699 kg

DRUGS (2)
  1. CYMBALTA [Suspect]
     Indication: PAIN
     Dosage: 30MG
     Route: 048
     Dates: start: 20110529, end: 20110724
  2. CYMBALTA [Suspect]
     Indication: DEPRESSION
     Dosage: 30MG
     Route: 048
     Dates: start: 20110529, end: 20110724

REACTIONS (12)
  - IMPAIRED DRIVING ABILITY [None]
  - INTERNATIONAL NORMALISED RATIO INCREASED [None]
  - CONTUSION [None]
  - DIARRHOEA HAEMORRHAGIC [None]
  - PYREXIA [None]
  - BALANCE DISORDER [None]
  - ACTIVITIES OF DAILY LIVING IMPAIRED [None]
  - VOMITING [None]
  - OEDEMA PERIPHERAL [None]
  - CHILLS [None]
  - MOUTH HAEMORRHAGE [None]
  - ASCITES [None]
